FAERS Safety Report 23045980 (Version 1)
Quarter: 2023Q4

REPORT INFORMATION
  Report Type: Spontaneous
  Country: CN (occurrence: CN)
  Receive Date: 20231009
  Receipt Date: 20231009
  Transmission Date: 20240109
  Serious: Yes (Other)
  Sender: FDA-Public Use
  Company Number: None

PATIENT
  Age: 22 Year
  Sex: Male
  Weight: 89 kg

DRUGS (6)
  1. CYCLOPHOSPHAMIDE [Suspect]
     Active Substance: CYCLOPHOSPHAMIDE
     Indication: Aplastic anaemia
     Dosage: 3 G, ONE TIME IN ONE DAY (DOSAGE FORM: POWDER INJECTION), DILUTED WITH 250 ML NS
     Route: 041
     Dates: start: 20230912, end: 20230916
  2. SODIUM CHLORIDE [Suspect]
     Active Substance: SODIUM CHLORIDE
     Indication: Medication dilution
     Dosage: 100 ML ONE TIME IN ONE DAY, USED TO DILUTE 50MG FLUDARABINE PHOSPHATE
     Route: 041
     Dates: start: 20230909, end: 20230913
  3. SODIUM CHLORIDE [Suspect]
     Active Substance: SODIUM CHLORIDE
     Dosage: 250 ML ONE TIME IN ONE DAY, USED TO DILUTE 3G CYCLOPHOSPHAMIDE
     Route: 041
     Dates: start: 20230912, end: 20230916
  4. SODIUM CHLORIDE [Suspect]
     Active Substance: SODIUM CHLORIDE
     Dosage: 50 ML ONE TIME IN ONE DAY (ROUTE: INTRA-PUMP INJECTION) (MICROPUMP INJECTION), USED TO DILUTE RABBIT
     Route: 050
     Dates: start: 20230912, end: 20230916
  5. FLUDARABINE PHOSPHATE [Suspect]
     Active Substance: FLUDARABINE PHOSPHATE
     Indication: Aplastic anaemia
     Dosage: 50 MG ONE TIME IN ONE DAY, DILUTED WITH 100 ML NS
     Route: 041
     Dates: start: 20230909, end: 20230913
  6. LAPINE T-LYMPHOCYTE IMMUNE GLOBULIN [Suspect]
     Active Substance: LAPINE T-LYMPHOCYTE IMMUNE GLOBULIN
     Indication: Aplastic anaemia
     Dosage: 25 MG ONE TIME IN ONE DAY (ROUTE: INTRA-PUMP INJECTION) (MICROPUMP INJECTION), DILUTED WITH 50 ML OF
     Route: 050
     Dates: start: 20230912, end: 20230916

REACTIONS (5)
  - Muscle spasticity [Recovering/Resolving]
  - Abdominal pain [Recovering/Resolving]
  - Diarrhoea [Recovering/Resolving]
  - Pyrexia [Recovering/Resolving]
  - Chills [Recovering/Resolving]

NARRATIVE: CASE EVENT DATE: 20230913
